FAERS Safety Report 8050362-1 (Version None)
Quarter: 2012Q1

REPORT INFORMATION
  Report Type: 
  Country: None (occurrence: None)
  Receive Date: 20120103
  Receipt Date: 20111221
  Transmission Date: 20120608
  Serious: Yes (Other)
  Sender: FDA-Public Use
  Company Number: 2011030622

PATIENT
  Sex: Female

DRUGS (3)
  1. HIZENTRA [Suspect]
     Dosage: (30 ML 1X/WEEK SUBCUTANEOUS) ; (5 CONSECUTIVE DAYS SUBCUTANEOUS)
     Route: 058
  2. ZYRTEC [Concomitant]
  3. AZITHROMYCIN [Concomitant]

REACTIONS (5)
  - DRUG INEFFECTIVE [None]
  - EYE INFECTION [None]
  - GINGIVAL INFECTION [None]
  - CONTUSION [None]
  - DIARRHOEA [None]
